FAERS Safety Report 8432024-1 (Version None)
Quarter: 2012Q2

REPORT INFORMATION
  Report Type: 
  Country: None (occurrence: None)
  Receive Date: 20120606
  Receipt Date: 20120524
  Transmission Date: 20120825
  Serious: Yes (Other)
  Sender: FDA-Public Use
  Company Number: 2012P1028489

PATIENT
  Age: 15 Year
  Sex: Male
  Weight: 78.0187 kg

DRUGS (4)
  1. LAMOTRIGINE [Suspect]
     Indication: CONVULSION PROPHYLAXIS
     Dosage: 75 MG; BID;  150 MG; BID;    75 MG; QAM;   87.5 MG; QPM;
     Dates: start: 20120521
  2. LAMOTRIGINE [Suspect]
     Indication: CONVULSION PROPHYLAXIS
     Dosage: 75 MG; BID;  150 MG; BID;    75 MG; QAM;   87.5 MG; QPM;
     Dates: start: 20120521
  3. LAMOTRIGINE [Suspect]
     Indication: CONVULSION PROPHYLAXIS
     Dosage: 75 MG; BID;  150 MG; BID;    75 MG; QAM;   87.5 MG; QPM;
     Dates: start: 20110901, end: 20120513
  4. LAMOTRIGINE [Suspect]
     Indication: CONVULSION PROPHYLAXIS
     Dosage: 75 MG; BID;  150 MG; BID;    75 MG; QAM;   87.5 MG; QPM;
     Dates: start: 20120514, end: 20120501

REACTIONS (3)
  - WEIGHT INCREASED [None]
  - TIC [None]
  - CONVULSION [None]
